FAERS Safety Report 8687611 (Version 2)
Quarter: 2013Q4

REPORT INFORMATION
  Report Type: Spontaneous
  Country: US (occurrence: US)
  Receive Date: 20120727
  Receipt Date: 20131101
  Transmission Date: 20140711
  Serious: No
  Sender: FDA-Public Use
  Company Number: US-009507513-1207USA007990

PATIENT
  Age: 2 Year
  Sex: Male

DRUGS (3)
  1. CLARITIN ORAL SOLUTION [Suspect]
     Indication: HYPERSENSITIVITY
     Dosage: 5 MG, QD
     Route: 048
     Dates: start: 20120701
  2. CLARITIN ORAL SOLUTION [Suspect]
     Dosage: 5 MG, ONCE
     Dates: start: 20120710
  3. CLARITIN ORAL SOLUTION [Suspect]
     Dosage: 5 MG, ONCE
     Dates: start: 20120710

REACTIONS (1)
  - Accidental overdose [Unknown]
